FAERS Safety Report 8000951-5 (Version None)
Quarter: 2011Q4

REPORT INFORMATION
  Report Type: 
  Country: None (occurrence: None)
  Receive Date: 20111222
  Receipt Date: 20111215
  Transmission Date: 20120403
  Serious: Yes (Other)
  Sender: FDA-Public Use
  Company Number: DE-ABBOTT-11P-062-0885331-00

PATIENT
  Sex: Female

DRUGS (1)
  1. ENANTONE 3.75 MG [Suspect]
     Indication: ENDOMETRIOSIS
     Route: 058
     Dates: start: 20110228

REACTIONS (1)
  - ARRESTED LABOUR [None]
